FAERS Safety Report 9123659 (Version 5)
Quarter: 2013Q3

REPORT INFORMATION
  Report Type: Spontaneous
  Country: CA (occurrence: CA)
  Receive Date: 20130115
  Receipt Date: 20130926
  Transmission Date: 20140515
  Serious: Yes (Other)
  Sender: FDA-Public Use
  Company Number: CA-ASTELLAS-2013US000334

PATIENT
  Sex: Female

DRUGS (9)
  1. PROGRAF [Suspect]
     Indication: RENAL TRANSPLANT
     Dosage: 3 MG, BID
     Route: 048
     Dates: start: 20121002, end: 20130107
  2. ADVAGRAF [Suspect]
     Indication: RENAL TRANSPLANT
     Dosage: UNK
     Route: 048
  3. MYFORTIC [Concomitant]
     Indication: PRODUCT USED FOR UNKNOWN INDICATION
     Dosage: UNK
     Route: 065
  4. ROCALTROL [Concomitant]
     Indication: PRODUCT USED FOR UNKNOWN INDICATION
     Dosage: UNK
     Route: 065
  5. PREDNISONE [Concomitant]
     Indication: PRODUCT USED FOR UNKNOWN INDICATION
     Dosage: UNK
     Route: 065
  6. HUMALOG [Concomitant]
     Indication: PRODUCT USED FOR UNKNOWN INDICATION
     Dosage: UNK
     Route: 065
  7. LANTUS [Concomitant]
     Indication: PRODUCT USED FOR UNKNOWN INDICATION
     Dosage: UNK
     Route: 065
  8. METOPROLOL [Concomitant]
     Indication: PRODUCT USED FOR UNKNOWN INDICATION
     Dosage: UNK
     Route: 065
  9. CELLCEPT                           /01275102/ [Concomitant]
     Indication: RENAL TRANSPLANT
     Dosage: 1 G, BID
     Route: 065

REACTIONS (23)
  - Drug ineffective [Unknown]
  - Aortic valve sclerosis [Unknown]
  - Mitral valve sclerosis [Unknown]
  - Superior vena cava occlusion [Unknown]
  - Hyperparathyroidism [Unknown]
  - Hypothyroidism [Unknown]
  - Thrombocytosis [Unknown]
  - Thyrotoxic crisis [Unknown]
  - Wound dehiscence [Unknown]
  - Ovarian cyst ruptured [Unknown]
  - Left ventricular hypertrophy [Unknown]
  - Urosepsis [Unknown]
  - Localised oedema [Unknown]
  - Renal failure acute [Unknown]
  - Vena cava thrombosis [Unknown]
  - Infection [Unknown]
  - Toxicity to various agents [Unknown]
  - Diabetes mellitus [Unknown]
  - Malignant hypertension [Unknown]
  - Urinary tract infection [Unknown]
  - Asymptomatic bacteriuria [Unknown]
  - Immunosuppressant drug level increased [Unknown]
  - Anxiety disorder [Unknown]
